FAERS Safety Report 8580837-8 (Version None)
Quarter: 2012Q3

REPORT INFORMATION
  Report Type: 
  Country: None (occurrence: None)
  Receive Date: 20120726
  Receipt Date: 20120716
  Transmission Date: 20120928
  Serious: Yes (Congenital Anomaly, Other)
  Sender: FDA-Public Use
  Company Number: AUR-APL-2012-03151

PATIENT
  Sex: Male
  Weight: 4.05 kg

DRUGS (2)
  1. RISPERIDONE [Suspect]
     Indication: BIPOLAR I DISORDER
     Dosage: 2 MG/DAY, TRANSPLACENTAL
     Route: 064
     Dates: start: 20110621, end: 20120402
  2. FOLIO (FOLIC ACID) [Concomitant]

REACTIONS (2)
  - MATERNAL DRUGS AFFECTING FOETUS [None]
  - HAEMANGIOMA CONGENITAL [None]
